FAERS Safety Report 23410791 (Version 1)
Quarter: 2024Q1

REPORT INFORMATION
  Report Type: Spontaneous
  Country: CA (occurrence: CA)
  Receive Date: 20240117
  Receipt Date: 20240117
  Transmission Date: 20240410
  Serious: Yes (Other)
  Sender: FDA-Public Use
  Company Number: CA-BAXTER-2023BAX039352

PATIENT

DRUGS (2)
  1. TISSEEL (FACTOR XIII CONCENTRATE (HUMAN)\FIBRINOGEN HUMAN\THROMBIN HUM [Suspect]
     Active Substance: APROTININ\CALCIUM CHLORIDE\FIBRINOGEN HUMAN\FACTOR XIII CONCENTRATE (HUMAN)\THROMBIN
     Dosage: 500UI (CONG), 10ML AT AN UNSPECIFIED FREQUENCY, 500UI (CONG) AT 17:00 HOURS
     Route: 065
     Dates: start: 20231124
  2. THROMBIN [Suspect]
     Active Substance: THROMBIN
     Indication: Tissue sealing
     Dosage: AT AN UNSPECIFIED DOSE AND FREQUENCY, VHSD HM 10ML NF 6PK AT 15:10 HOURS AND 16:04 HOURS
     Route: 065
     Dates: start: 20231124

REACTIONS (4)
  - Shock [Recovered/Resolved]
  - Tachycardia [Recovered/Resolved]
  - Rash [Recovered/Resolved]
  - Hypotension [Recovered/Resolved]

NARRATIVE: CASE EVENT DATE: 20231124
